FAERS Safety Report 20884531 (Version 1)
Quarter: 2022Q2

REPORT INFORMATION
  Report Type: Spontaneous
  Country: US (occurrence: US)
  Receive Date: 20220527
  Receipt Date: 20220527
  Transmission Date: 20220721
  Serious: No
  Sender: FDA-Public Use
  Company Number: US-PFIZER INC-202200743732

PATIENT
  Age: 45 Year
  Sex: Female

DRUGS (17)
  1. PAXLOVID [Suspect]
     Active Substance: NIRMATRELVIR\RITONAVIR
     Indication: COVID-19 treatment
     Dosage: UNK
     Dates: start: 20220504, end: 20220509
  2. ASPIRIN [Concomitant]
     Active Substance: ASPIRIN
     Dosage: UNK
     Dates: start: 20220503
  3. DOXYCYCLINE [Concomitant]
     Active Substance: DOXYCYCLINE
     Dosage: UNK
     Dates: start: 20220517
  4. DEXAMETHASONE [Concomitant]
     Active Substance: DEXAMETHASONE
     Dosage: UNK
     Dates: start: 20220513, end: 20220522
  5. SAXENDA [Concomitant]
     Active Substance: LIRAGLUTIDE
     Dosage: UNK
     Dates: start: 202007
  6. ALBUTEROL\IPRATROPIUM [Concomitant]
     Active Substance: ALBUTEROL\IPRATROPIUM
     Dosage: UNK
     Route: 055
     Dates: start: 20220513
  7. ALBUTEROL [Concomitant]
     Active Substance: ALBUTEROL
     Dosage: 1.25MG/3ML
     Dates: start: 20220505, end: 20220513
  8. BUDESONIDE [Concomitant]
     Active Substance: BUDESONIDE
     Dosage: 1MG/2ML
     Dates: start: 20220513
  9. ALPRAZOLAM [Concomitant]
     Active Substance: ALPRAZOLAM
     Dosage: UNK
     Dates: start: 201805
  10. MELOXICAM [Concomitant]
     Active Substance: MELOXICAM
     Dosage: UNK
     Dates: start: 20220309, end: 20220503
  11. METRONIDAZOLE [Concomitant]
     Active Substance: METRONIDAZOLE
     Dosage: UNK
     Route: 061
     Dates: start: 20220222
  12. AZELASTINE [Concomitant]
     Active Substance: AZELASTINE
     Dosage: 0.1% (137MCG)
     Route: 045
     Dates: start: 20220325
  13. XHANCE [Concomitant]
     Active Substance: FLUTICASONE PROPIONATE
     Dosage: UNK
     Route: 045
     Dates: start: 20220105
  14. BUDESONIDE\FORMOTEROL [Concomitant]
     Active Substance: BUDESONIDE\FORMOTEROL
     Dosage: UNK
     Dates: start: 202004
  15. HERBALS\TURMERIC [Concomitant]
     Active Substance: HERBALS\TURMERIC
     Dosage: UNK
     Dates: start: 202103
  16. GLUCOSAMIN + CHONDROITIN [Concomitant]
     Dosage: UNK
     Dates: start: 20220222
  17. MONTELUKAST [Concomitant]
     Active Substance: MONTELUKAST SODIUM
     Dosage: UNK
     Dates: start: 201805

REACTIONS (1)
  - Symptom recurrence [Recovering/Resolving]

NARRATIVE: CASE EVENT DATE: 20220513
